FAERS Safety Report 9637352 (Version 2)
Quarter: 2013Q4

REPORT INFORMATION
  Report Type: Report from Study
  Country: US (occurrence: US)
  Receive Date: 20131022
  Receipt Date: 20131022
  Transmission Date: 20140711
  Serious: No
  Sender: FDA-Public Use
  Company Number: PHEH2013US019804

PATIENT
  Sex: Female
  Weight: 81.63 kg

DRUGS (3)
  1. TASIGNA [Suspect]
     Indication: ACUTE MYELOID LEUKAEMIA
     Dosage: 300 MG, BID
     Route: 048
     Dates: start: 20121217
  2. TASIGNA [Suspect]
     Indication: OFF LABEL USE
     Dosage: 300 MG, BID
     Route: 048
     Dates: start: 201212
  3. TASIGNA [Suspect]
     Dosage: 150 MG, BID
     Route: 048

REACTIONS (3)
  - Oedema peripheral [Recovering/Resolving]
  - Rash [Recovering/Resolving]
  - Rash pruritic [Unknown]
